FAERS Safety Report 22648036 (Version 1)
Quarter: 2023Q2

REPORT INFORMATION
  Report Type: Spontaneous
  Country: CA (occurrence: CA)
  Receive Date: 20230628
  Receipt Date: 20230628
  Transmission Date: 20230721
  Serious: Yes (Disabling)
  Sender: FDA-Public Use
  Company Number: CA-SA-SAC20230627000127

PATIENT
  Age: 59 Year
  Sex: Male
  Weight: 80 kg

DRUGS (1)
  1. MYOZYME [Suspect]
     Active Substance: ALGLUCOSIDASE ALFA
     Indication: Glycogen storage disease type II
     Dosage: 1650 MG, QOW
     Route: 065
     Dates: start: 2016

REACTIONS (1)
  - Limb injury [Unknown]

NARRATIVE: CASE EVENT DATE: 20230606
